FAERS Safety Report 17508656 (Version 1)
Quarter: 2020Q1

REPORT INFORMATION
  Report Type: Spontaneous
  Country: AU (occurrence: AU)
  Receive Date: 20200306
  Receipt Date: 20200306
  Transmission Date: 20200409
  Serious: Yes (Other)
  Sender: FDA-Public Use
  Company Number: AU-ASTELLAS-2020US008499

PATIENT
  Sex: Female
  Weight: 2.05 kg

DRUGS (2)
  1. TACROLIMUS. [Suspect]
     Active Substance: TACROLIMUS
     Indication: FOETAL EXPOSURE DURING PREGNANCY
     Dosage: UNK UNK, UNKNOWN FREQ.
     Route: 064
  2. TACROLIMUS. [Suspect]
     Active Substance: TACROLIMUS
     Indication: EXPOSURE VIA BREAST MILK
     Dosage: UNK UNK, UNKNOWN FREQ.
     Route: 063

REACTIONS (3)
  - Exposure via breast milk [Unknown]
  - Low birth weight baby [Unknown]
  - Premature baby [Unknown]
